FAERS Safety Report 5940326-3 (Version None)
Quarter: 2008Q4

REPORT INFORMATION
  Report Type: 
  Country: None (occurrence: None)
  Receive Date: 20081104
  Receipt Date: 20081030
  Transmission Date: 20090506
  Serious: Yes (Hospitalization)
  Sender: FDA-Public Use
  Company Number: B0544223A

PATIENT
  Age: 54 Year
  Sex: Female

DRUGS (7)
  1. VALTREX [Suspect]
     Indication: HERPES ZOSTER
     Dosage: 500MG PER DAY
     Route: 048
     Dates: start: 20081024, end: 20081026
  2. OLMETEC [Concomitant]
     Indication: HYPERTENSION
     Dosage: 20MG TWICE PER DAY
     Route: 048
  3. ADALAT [Concomitant]
     Indication: HYPERTENSION
     Dosage: 20MG TWICE PER DAY
     Route: 048
  4. CALTAN [Concomitant]
     Dosage: 500MG THREE TIMES PER DAY
     Route: 048
  5. BUFFERIN [Concomitant]
     Indication: SHUNT INFECTION
     Route: 048
  6. FUROSEMIDE [Concomitant]
     Indication: RENAL FAILURE
     Dosage: 40MG TWICE PER DAY
     Route: 048
  7. EPADEL [Concomitant]
     Indication: ARTERIOSCLEROSIS
     Dosage: 600MG THREE TIMES PER DAY
     Route: 048

REACTIONS (6)
  - BLOOD PRESSURE INCREASED [None]
  - DYSSTASIA [None]
  - MALAISE [None]
  - NAUSEA [None]
  - NERVOUS SYSTEM DISORDER [None]
  - VOMITING [None]
